FAERS Safety Report 19778576 (Version 1)
Quarter: 2021Q3

REPORT INFORMATION
  Report Type: Spontaneous
  Country: US (occurrence: US)
  Receive Date: 20210902
  Receipt Date: 20210902
  Transmission Date: 20211014
  Serious: Yes (Hospitalization, Other)
  Sender: FDA-Public Use
  Company Number: None

PATIENT
  Age: 33 Year
  Sex: Female
  Weight: 63.5 kg

DRUGS (4)
  1. XOLIAR [Concomitant]
     Active Substance: OMALIZUMAB
  2. BENADRYL [Concomitant]
     Active Substance: DIPHENHYDRAMINE HYDROCHLORIDE
     Dates: start: 20210520, end: 20210527
  3. SOLU?MEDROL [Concomitant]
     Active Substance: METHYLPREDNISOLONE SODIUM SUCCINATE
     Dates: start: 20210520
  4. RUXIENCE [Suspect]
     Active Substance: RITUXIMAB-PVVR
     Indication: SYSTEMIC LUPUS ERYTHEMATOSUS
     Dosage: ?          OTHER FREQUENCY:WEEKLY;?
     Route: 042
     Dates: start: 20210520, end: 20210527

REACTIONS (4)
  - Serum sickness [None]
  - Type III immune complex mediated reaction [None]
  - Systemic inflammatory response syndrome [None]
  - Arthralgia [None]

NARRATIVE: CASE EVENT DATE: 20210527
